FAERS Safety Report 21641105 (Version 2)
Quarter: 2022Q4

REPORT INFORMATION
  Report Type: Spontaneous
  Country: FR (occurrence: FR)
  Receive Date: 20221125
  Receipt Date: 20221213
  Transmission Date: 20230112
  Serious: Yes (Hospitalization, Other)
  Sender: FDA-Public Use
  Company Number: FR-AFSSAPS-PC20222289

PATIENT
  Age: 45 Year
  Sex: Female

DRUGS (16)
  1. ACYCLOVIR [Suspect]
     Active Substance: ACYCLOVIR
     Indication: Product used for unknown indication
     Dosage: 1500 MILLIGRAM, ONCE A DAY
     Route: 048
     Dates: start: 20210108, end: 20210110
  2. ACYCLOVIR [Suspect]
     Active Substance: ACYCLOVIR
     Dosage: 500 MILLIGRAM, 3 TIMES A DAY
     Route: 042
     Dates: start: 20210108, end: 20210110
  3. FUROSEMIDE [Suspect]
     Active Substance: FUROSEMIDE
     Indication: Product used for unknown indication
     Dosage: 40 MILLIGRAM, ONCE A DAY
     Route: 048
     Dates: start: 20210109, end: 20210111
  4. FUROSEMIDE [Suspect]
     Active Substance: FUROSEMIDE
     Dosage: UNK
     Route: 042
     Dates: start: 20210111
  5. FUROSEMIDE [Suspect]
     Active Substance: FUROSEMIDE
     Dosage: 40 MILLIGRAM
     Route: 042
     Dates: start: 20210109
  6. VALACYCLOVIR HYDROCHLORIDE [Suspect]
     Active Substance: VALACYCLOVIR HYDROCHLORIDE
     Indication: Product used for unknown indication
     Dosage: 3 GRAM, ONCE A DAY
     Route: 048
     Dates: start: 20210111, end: 20210114
  7. CASPOFUNGIN [Suspect]
     Active Substance: CASPOFUNGIN
     Indication: Product used for unknown indication
     Dosage: 70 MILLIGRAM, ONCE A DAY
     Route: 048
     Dates: start: 20201206, end: 20210108
  8. PREDNISONE [Suspect]
     Active Substance: PREDNISONE
     Indication: Product used for unknown indication
     Dosage: 55 MILLIGRAM, ONCE A DAY
     Route: 048
     Dates: start: 20201212, end: 20201228
  9. PIPERACILLIN SODIUM\TAZOBACTAM SODIUM [Suspect]
     Active Substance: PIPERACILLIN SODIUM\TAZOBACTAM SODIUM
     Indication: Antibiotic therapy
     Dosage: 16 GRAM, ONCE A DAY (4 G 4 FOIS PAR JOUR)
     Route: 048
     Dates: start: 20201206, end: 20210108
  10. TRISENOX [Suspect]
     Active Substance: ARSENIC TRIOXIDE
     Indication: Acute myeloid leukaemia
     Dosage: UNK
     Route: 048
     Dates: start: 20201207, end: 20210111
  11. VESANOID [Suspect]
     Active Substance: TRETINOIN
     Indication: Acute myeloid leukaemia
     Dosage: 90 MILLIGRAM, ONCE A DAY
     Route: 048
     Dates: start: 20201207, end: 20210106
  12. VESANOID [Suspect]
     Active Substance: TRETINOIN
     Dosage: TWO TIMES A DAY (BID, 40 MG MORNING AND 50 MG EVENING)
     Route: 048
     Dates: start: 20201207, end: 20210106
  13. DEXAMETHASONE [Concomitant]
     Active Substance: DEXAMETHASONE
     Indication: Product used for unknown indication
     Dosage: 10 MILLIGRAM, TWO TIMES A DAY
     Route: 065
     Dates: start: 20201206
  14. IDARUBICIN [Concomitant]
     Active Substance: IDARUBICIN
     Indication: Product used for unknown indication
     Dosage: UNK
     Route: 065
     Dates: start: 20201207
  15. Loxen [Concomitant]
     Indication: Product used for unknown indication
     Dosage: 100 MILLIGRAM (50 MG 2 FOIS PAR JOUR)
     Route: 048
  16. LOVENOX [Concomitant]
     Active Substance: ENOXAPARIN SODIUM
     Indication: Product used for unknown indication
     Dosage: 12000 UNITS/VIAL, TWO TIMES A DAY
     Route: 058

REACTIONS (1)
  - Drug reaction with eosinophilia and systemic symptoms [Recovered/Resolved]

NARRATIVE: CASE EVENT DATE: 20210115
